FAERS Safety Report 19933124 (Version 1)
Quarter: 2021Q4

REPORT INFORMATION
  Report Type: Spontaneous
  Country: KR (occurrence: KR)
  Receive Date: 20211008
  Receipt Date: 20211008
  Transmission Date: 20220304
  Serious: Yes (Other)
  Sender: FDA-Public Use
  Company Number: KR-ABBOTT-2021A-1339540

PATIENT
  Age: 4 Year
  Weight: 19 kg

DRUGS (2)
  1. DEPAKOTE [Suspect]
     Active Substance: DIVALPROEX SODIUM
     Indication: Product used for unknown indication
     Dosage: DAILY DOSE: 2 CAPSULE (PREVIOUS DOSE)
     Route: 048
     Dates: start: 202109, end: 2021
  2. DEPAKOTE [Suspect]
     Active Substance: DIVALPROEX SODIUM
     Dosage: 2 CAPSULE, TWICE A DAY (CURRENT DOSE)
     Route: 048
     Dates: start: 2021

REACTIONS (9)
  - Condition aggravated [Not Recovered/Not Resolved]
  - Epistaxis [Unknown]
  - Product use issue [Unknown]
  - Off label use [Unknown]
  - Intentional product misuse [Unknown]
  - Seizure [Not Recovered/Not Resolved]
  - Dizziness [Unknown]
  - Pyrexia [Unknown]
  - Headache [Unknown]
